FAERS Safety Report 6312030-3 (Version None)
Quarter: 2009Q3

REPORT INFORMATION
  Report Type: 
  Country: None (occurrence: None)
  Receive Date: 20090817
  Receipt Date: 20090813
  Transmission Date: 20100115
  Serious: No
  Sender: FDA-Public Use
  Company Number: US-B.I. PHARMACEUTICALS,INC./RIDGEFIELD-2009-BP-09604BP

PATIENT
  Age: 71 Year
  Sex: Female

DRUGS (9)
  1. AGGRENOX [Suspect]
  2. MIRAPEX [Suspect]
  3. MELOXICAM [Suspect]
  4. GABAPENTIN [Concomitant]
  5. TYLENOL (CAPLET) [Concomitant]
  6. ENALAPRIL MALEATE [Concomitant]
  7. RESPERADAL [Concomitant]
  8. PROZAC [Concomitant]
  9. CELEXA [Concomitant]

REACTIONS (1)
  - GASTROINTESTINAL HAEMORRHAGE [None]
